FAERS Safety Report 12259102 (Version 1)
Quarter: 2016Q2

REPORT INFORMATION
  Report Type: Spontaneous
  Country: US (occurrence: US)
  Receive Date: 20160412
  Receipt Date: 20160412
  Transmission Date: 20160815
  Serious: No
  Sender: FDA-Public Use
  Company Number: US-SA-2015SA064928

PATIENT
  Age: 83 Year
  Sex: Female

DRUGS (1)
  1. ALLEGRA [Suspect]
     Active Substance: FEXOFENADINE HYDROCHLORIDE
     Dosage: DOSE:ONE PILL AT 11AM, AND ONE AT 11PM?START DATE: ONE WEEK AGO
     Route: 048

REACTIONS (1)
  - Therapeutic response decreased [Unknown]
